FAERS Safety Report 16642418 (Version 2)
Quarter: 2019Q3

REPORT INFORMATION
  Report Type: Spontaneous
  Country: IT (occurrence: IT)
  Receive Date: 20190729
  Receipt Date: 20190814
  Transmission Date: 20191004
  Serious: Yes (Other)
  Sender: FDA-Public Use
  Company Number: IT-PFIZER INC-2019321102

PATIENT
  Age: 50 Year
  Sex: Female

DRUGS (7)
  1. REAGILA [Suspect]
     Active Substance: CARIPRAZINE
     Indication: PSYCHOTIC DISORDER
     Dosage: 1.5 MG, 1X/DAY
     Route: 048
     Dates: start: 20190629, end: 20190629
  2. TAVOR (LORAZEPAM) [Suspect]
     Active Substance: LORAZEPAM
     Indication: PSYCHOTIC DISORDER
     Dosage: 1 DF, 1X/DAY
     Route: 048
     Dates: start: 20190628, end: 20190708
  3. REAGILA [Suspect]
     Active Substance: CARIPRAZINE
     Dosage: 4.5 UNK, UNK
     Route: 048
     Dates: start: 20190701, end: 20190708
  4. DEPAKIN [Suspect]
     Active Substance: VALPROATE SODIUM
     Indication: PSYCHOTIC DISORDER
     Dosage: 2.5 DF, 1X/DAY
     Route: 048
  5. FLURAZEPAM [Suspect]
     Active Substance: FLURAZEPAM HYDROCHLORIDE
     Indication: SLEEP DISORDER
     Dosage: 30 MG, 1X/DAY
     Route: 048
  6. REAGILA [Suspect]
     Active Substance: CARIPRAZINE
     Dosage: 3 MG, 1X/DAY
     Route: 048
     Dates: start: 20190630, end: 20190630
  7. URSODEOXYCHOLIC ACID [Concomitant]
     Active Substance: URSODIOL
     Dosage: 300 MG, UNK
     Route: 048

REACTIONS (1)
  - Neutropenia [Recovered/Resolved]

NARRATIVE: CASE EVENT DATE: 20190708
